FAERS Safety Report 7045292-8 (Version None)
Quarter: 2010Q4

REPORT INFORMATION
  Report Type: 
  Country: None (occurrence: None)
  Receive Date: 20101014
  Receipt Date: 20100806
  Transmission Date: 20110411
  Serious: No
  Sender: FDA-Public Use
  Company Number: US-ALLERGAN-1010263US

PATIENT
  Age: 56 Year
  Sex: Female

DRUGS (1)
  1. LATISSE [Suspect]
     Indication: HYPOTRICHOSIS
     Dosage: 3 GTT, QHS
     Route: 061
     Dates: start: 20100601, end: 20100803

REACTIONS (3)
  - INCORRECT DOSE ADMINISTERED [None]
  - MADAROSIS [None]
  - PRURITUS [None]
